FAERS Safety Report 6861960-2 (Version None)
Quarter: 2010Q3

REPORT INFORMATION
  Report Type: 
  Country: None (occurrence: None)
  Receive Date: 20100720
  Receipt Date: 20100720
  Transmission Date: 20110219
  Serious: Yes (Other)
  Sender: FDA-Public Use
  Company Number: None

PATIENT
  Sex: Female
  Weight: 79.8331 kg

DRUGS (6)
  1. PROTONIX [Suspect]
     Indication: HELICOBACTER INFECTION
     Dosage: BID
     Dates: start: 20090624
  2. NEXIUM [Suspect]
     Indication: GASTROOESOPHAGEAL REFLUX DISEASE
     Dosage: BID
     Dates: start: 20100112
  3. OMEPRAZOLE [Concomitant]
  4. PLAVIX [Concomitant]
  5. PRLOSEC [Concomitant]
  6. PANTOPRAZOLE [Concomitant]

REACTIONS (1)
  - ANXIETY [None]
